FAERS Safety Report 5593521-X (Version None)
Quarter: 2007Q4

REPORT INFORMATION
  Report Type: 
  Country: None (occurrence: None)
  Receive Date: 20071218
  Receipt Date: 20070312
  Transmission Date: 20080405
  Serious: Yes (Hospitalization, Disabling, Other)
  Sender: FDA-Public Use
  Company Number: 2006149267

PATIENT
  Age: 49 Year
  Sex: Female
  Weight: 165.6 kg

DRUGS (1)
  1. BEXTRA [Suspect]
     Indication: ARTHRITIS
     Dosage: 20 MG (10 MG,2 IN 1 D),ORAL
     Route: 048
     Dates: start: 20031001

REACTIONS (1)
  - THROMBOSIS [None]
